FAERS Safety Report 10911978 (Version 1)
Quarter: 2015Q1

REPORT INFORMATION
  Report Type: Spontaneous
  Country: US (occurrence: None)
  Receive Date: 20150128
  Receipt Date: 20150128
  Transmission Date: 20150721
  Serious: No
  Sender: FDA-Public Use
  Company Number: 2014TUS009938

PATIENT
  Age: 50 Year
  Sex: Female
  Weight: 89.8 kg

DRUGS (6)
  1. CARBAMAZEPINE. [Concomitant]
     Active Substance: CARBAMAZEPINE
  2. MELOXICAM. [Concomitant]
     Active Substance: MELOXICAM
  3. VIIBRYD (VAPREOTIDE) [Concomitant]
  4. TRAZODONE [Concomitant]
     Active Substance: TRAZODONE HYDROCHLORIDE
  5. BRINTELLIX [Suspect]
     Active Substance: VORTIOXETINE HYDROBROMIDE
     Indication: DEPRESSION
  6. HYDROCHLOROTHIAZIDE. [Concomitant]
     Active Substance: HYDROCHLOROTHIAZIDE

REACTIONS (2)
  - Pruritus generalised [None]
  - Rash maculo-papular [None]

NARRATIVE: CASE EVENT DATE: 20141008
